FAERS Safety Report 7625754-2 (Version None)
Quarter: 2011Q3

REPORT INFORMATION
  Report Type: 
  Country: None (occurrence: None)
  Receive Date: 20110721
  Receipt Date: 20110708
  Transmission Date: 20111222
  Serious: Yes (Hospitalization)
  Sender: FDA-Public Use
  Company Number: DE-UCBSA-036786

PATIENT
  Sex: Male

DRUGS (3)
  1. LAMICTAL [Concomitant]
     Dates: start: 20081101
  2. VIMPAT [Suspect]
     Indication: EPILEPSY
     Dosage: 100-0-300
     Route: 048
     Dates: start: 20090131, end: 20090422
  3. VALPROATE SODIUM [Concomitant]
     Dates: start: 20080901

REACTIONS (1)
  - INFECTION [None]
